FAERS Safety Report 4338797-1 (Version None)
Quarter: 2004Q2

REPORT INFORMATION
  Report Type: 
  Country: None (occurrence: None)
  Receive Date: 20040409
  Receipt Date: 20040330
  Transmission Date: 20050107
  Serious: Yes (Other)
  Sender: FDA-Public Use
  Company Number: HQWYE260730MAR04

PATIENT
  Sex: Male

DRUGS (4)
  1. EFFEXOR [Suspect]
     Dosage: 150 MG 2X PER 1 DAY, ORAL
     Route: 048
  2. EFFEXOR [Suspect]
     Dosage: 150 MG 1X PER 1 DAY, ORAL
     Route: 048
  3. EFFEXOR [Suspect]
     Dosage: 150 MG 1X PER 2 DAY, ORAL
     Route: 048
  4. EFFEXOR [Suspect]
     Dosage: 150 MG AS NEEDED, ORAL
     Route: 048

REACTIONS (3)
  - DRUG DEPENDENCE [None]
  - DRUG INEFFECTIVE [None]
  - DRUG WITHDRAWAL SYNDROME [None]
